FAERS Safety Report 7375795-8 (Version None)
Quarter: 2011Q1

REPORT INFORMATION
  Report Type: 
  Country: None (occurrence: None)
  Receive Date: 20110325
  Receipt Date: 20110316
  Transmission Date: 20110831
  Serious: Yes (Other)
  Sender: FDA-Public Use
  Company Number: A0849023A

PATIENT
  Age: 62 Year
  Sex: Male
  Weight: 139.1 kg

DRUGS (2)
  1. AVANDIA [Suspect]
     Indication: DIABETES MELLITUS
     Dosage: 4MG UNKNOWN
     Route: 048
     Dates: start: 20040226, end: 20080128
  2. AVANDAMET [Suspect]
     Indication: DIABETES MELLITUS
     Route: 048
     Dates: start: 20040331, end: 20051007

REACTIONS (10)
  - GOUT [None]
  - CYSTITIS [None]
  - CORONARY ARTERY DISEASE [None]
  - TOE AMPUTATION [None]
  - RENAL FAILURE [None]
  - CARDIAC DISORDER [None]
  - POOR PERIPHERAL CIRCULATION [None]
  - ANGINA PECTORIS [None]
  - CORONARY ARTERIAL STENT INSERTION [None]
  - MUSCLE SPASMS [None]
